FAERS Safety Report 8880194 (Version 1)
Quarter: 2012Q4

REPORT INFORMATION
  Report Type: 
  Country: BR (occurrence: BR)
  Receive Date: 20121031
  Receipt Date: 20121031
  Transmission Date: 20130627
  Serious: Yes (Death, Hospitalization, Disabling)
  Sender: FDA-Public Use
  Company Number: BR-ASTRAZENECA-2012SE82207

PATIENT
  Age: 1060 Month
  Sex: Male

DRUGS (5)
  1. ATACAND HCT [Suspect]
     Indication: HYPERTENSION
     Dosage: 16/12.5 MG DAILY
     Route: 048
  2. ATACAND HCT [Suspect]
     Indication: CARDIAC DISORDER
     Dosage: 16/12.5 MG DAILY
     Route: 048
  3. ANCORON [Concomitant]
     Route: 048
  4. BUFFERIN [Concomitant]
     Route: 048
  5. RIVOTRIL [Concomitant]
     Route: 048

REACTIONS (3)
  - Sepsis [Fatal]
  - Femur fracture [Recovered/Resolved]
  - Intestinal perforation [Not Recovered/Not Resolved]
